FAERS Safety Report 8289456-4 (Version None)
Quarter: 2012Q2

REPORT INFORMATION
  Report Type: 
  Country: None (occurrence: None)
  Receive Date: 20120417
  Receipt Date: 20120413
  Transmission Date: 20120825
  Serious: Yes (Death, Life-Threatening, Other)
  Sender: FDA-Public Use
  Company Number: US-GENZYME-CLOF-1002117

PATIENT
  Sex: Male
  Weight: 116.57 kg

DRUGS (4)
  1. CLOLAR [Suspect]
     Indication: ACUTE MYELOID LEUKAEMIA
     Dosage: 94 MG, ONCE
     Route: 042
     Dates: start: 20120329, end: 20120402
  2. BUSULFAN [Suspect]
     Indication: ACUTE MYELOID LEUKAEMIA
     Dosage: 249 MG, ONCE
     Route: 042
     Dates: start: 20120330, end: 20120331
  3. CLOLAR [Suspect]
     Indication: BONE MARROW CONDITIONING REGIMEN
  4. BUSULFAN [Suspect]
     Indication: BONE MARROW CONDITIONING REGIMEN
     Dosage: 390 MG, ONCE
     Route: 042
     Dates: start: 20120401, end: 20120402

REACTIONS (9)
  - PULSELESS ELECTRICAL ACTIVITY [None]
  - PLEURAL EFFUSION [None]
  - PNEUMONIA [None]
  - NEUTROPENIC COLITIS [None]
  - STAPHYLOCOCCAL BACTERAEMIA [None]
  - NEUTROPENIC SEPSIS [None]
  - MENTAL STATUS CHANGES [None]
  - HYPOTENSION [None]
  - RENAL FAILURE [None]
